FAERS Safety Report 8620692-0 (Version None)
Quarter: 2012Q3

REPORT INFORMATION
  Report Type: 
  Country: None (occurrence: None)
  Receive Date: 20120824
  Receipt Date: 20120817
  Transmission Date: 20120928
  Serious: Yes (Other)
  Sender: FDA-Public Use
  Company Number: US-JNJFOC-20120809533

PATIENT
  Sex: Male
  Weight: 87.09 kg

DRUGS (5)
  1. XARELTO [Suspect]
     Indication: CEREBROVASCULAR ACCIDENT PROPHYLAXIS
     Route: 048
     Dates: start: 20120701
  2. LIPITOR [Concomitant]
     Indication: BLOOD CHOLESTEROL
  3. XARELTO [Suspect]
     Indication: ATRIAL FIBRILLATION
     Route: 048
     Dates: start: 20120701
  4. LISINOPRIL [Concomitant]
     Indication: HYPERTENSION
  5. DIGOXIN [Concomitant]
     Indication: HEART RATE INCREASED

REACTIONS (4)
  - BLOOD URINE PRESENT [None]
  - HAEMORRHAGE [None]
  - POST PROCEDURAL HAEMORRHAGE [None]
  - URETHRAL STENOSIS [None]
